FAERS Safety Report 5889581-9 (Version None)
Quarter: 2008Q3

REPORT INFORMATION
  Report Type: 
  Country: None (occurrence: None)
  Receive Date: 20080919
  Receipt Date: 20080912
  Transmission Date: 20090109
  Serious: Yes (Hospitalization)
  Sender: FDA-Public Use
  Company Number: A0748253A

PATIENT
  Age: 62 Year
  Sex: Male
  Weight: 104.5 kg

DRUGS (9)
  1. AVANDIA [Suspect]
     Indication: DIABETES MELLITUS
     Dosage: 4MG TWICE PER DAY
     Route: 048
     Dates: start: 20000101, end: 20061101
  2. AVANDAMET [Suspect]
     Indication: DIABETES MELLITUS
     Route: 048
     Dates: start: 19940501, end: 20000101
  3. METFORMIN HCL [Concomitant]
  4. FORTAMET [Concomitant]
  5. GLUCOPHAGE [Concomitant]
  6. PRANDIN [Concomitant]
  7. LANTUS [Concomitant]
  8. ZOCOR [Concomitant]
  9. ASPIRIN [Concomitant]

REACTIONS (1)
  - HEART INJURY [None]
